FAERS Safety Report 5558995-9 (Version None)
Quarter: 2007Q4

REPORT INFORMATION
  Report Type: 
  Country: None (occurrence: None)
  Receive Date: 20071130
  Receipt Date: 20070808
  Transmission Date: 20080405
  Serious: No
  Sender: FDA-Public Use
  Company Number: US200708003521

PATIENT
  Age: 60 Year
  Sex: Female

DRUGS (5)
  1. BYETTA [Suspect]
     Indication: TYPE 2 DIABETES MELLITUS
     Dosage: 5 UG, 2/D, SUBCUTANEOUS
     Route: 058
     Dates: start: 20070525
  2. GLUCOPHAGE [Concomitant]
  3. ACTOS [Concomitant]
  4. AMARYL [Concomitant]
  5. PLAVIX [Concomitant]

REACTIONS (4)
  - BLOOD GLUCOSE INCREASED [None]
  - EARLY SATIETY [None]
  - INJECTION SITE BRUISING [None]
  - WEIGHT DECREASED [None]
